FAERS Safety Report 21741741 (Version 1)
Quarter: 2022Q4

REPORT INFORMATION
  Report Type: Spontaneous
  Country: AR (occurrence: AR)
  Receive Date: 20221216
  Receipt Date: 20221216
  Transmission Date: 20230113
  Serious: Yes (Other)
  Sender: FDA-Public Use
  Company Number: AR-PFIZER INC-PV202200123348

PATIENT
  Age: 57 Year
  Sex: Female

DRUGS (1)
  1. IBRANCE [Suspect]
     Active Substance: PALBOCICLIB

REACTIONS (6)
  - Pulmonary oedema [Recovering/Resolving]
  - Mental impairment [Unknown]
  - Alopecia [Unknown]
  - Nail disorder [Unknown]
  - Nervousness [Unknown]
  - Suffocation feeling [Unknown]
